FAERS Safety Report 16054635 (Version 1)
Quarter: 2019Q1

REPORT INFORMATION
  Report Type: Spontaneous
  Country: GR (occurrence: GR)
  Receive Date: 20190309
  Receipt Date: 20190309
  Transmission Date: 20190418
  Serious: Yes (Death, Other)
  Sender: FDA-Public Use
  Company Number: GR-SEATTLE GENETICS-2019SGN00606

PATIENT
  Age: 65 Year
  Sex: Male

DRUGS (1)
  1. ADCETRIS [Suspect]
     Active Substance: BRENTUXIMAB VEDOTIN
     Indication: MYCOSIS FUNGOIDES STAGE II
     Dosage: 12 CYCLES
     Route: 065

REACTIONS (2)
  - Neurotoxicity [Unknown]
  - Mycosis fungoides stage II [Fatal]
